FAERS Safety Report 5376414-2 (Version None)
Quarter: 2007Q3

REPORT INFORMATION
  Report Type: 
  Country: None (occurrence: None)
  Receive Date: 20070702
  Receipt Date: 20070622
  Transmission Date: 20080115
  Serious: Yes (Hospitalization, Other)
  Sender: FDA-Public Use
  Company Number: JP-PFIZER INC-2007051724

PATIENT
  Age: 49 Year
  Sex: Female

DRUGS (2)
  1. SOLU-MEDROL [Suspect]
     Indication: SUDDEN HEARING LOSS
  2. DEPAS [Concomitant]
     Route: 048

REACTIONS (2)
  - MANIA [None]
  - PSYCHOTIC DISORDER [None]
